FAERS Safety Report 4585807-2 (Version None)
Quarter: 2005Q1

REPORT INFORMATION
  Report Type: 
  Country: None (occurrence: None)
  Receive Date: 20050216
  Receipt Date: 20041006
  Transmission Date: 20050727
  Serious: Yes (Death)
  Sender: FDA-Public Use
  Company Number: 2004AL000839

PATIENT
  Age: 32 Year

DRUGS (4)
  1. IBUPROFEN [Suspect]
     Dosage: PO
     Route: 048
  2. IBUPROFEN [Suspect]
     Dosage: PO
     Route: 048
  3. VENLAFAXINE HCL [Suspect]
     Dosage: PO
     Route: 048
  4. QUETIAPINE [Suspect]
     Dosage: PO
     Route: 048

REACTIONS (2)
  - COMPLETED SUICIDE [None]
  - INTENTIONAL MISUSE [None]
